FAERS Safety Report 23540537 (Version 1)
Quarter: 2024Q1

REPORT INFORMATION
  Report Type: Spontaneous
  Country: US (occurrence: US)
  Receive Date: 20240219
  Receipt Date: 20240219
  Transmission Date: 20240409
  Serious: No
  Sender: FDA-Public Use
  Company Number: US-Stemline Therapeutics, Inc.-2023ST004735

PATIENT
  Age: 40 Year
  Sex: Female

DRUGS (19)
  1. ORSERDU [Suspect]
     Active Substance: ELACESTRANT
     Indication: Product used for unknown indication
     Dosage: 345 MG ONCE DAILY
     Route: 048
     Dates: start: 202308
  2. CALCIUM\VITAMIN D [Concomitant]
     Active Substance: CALCIUM\VITAMIN D
     Indication: Product used for unknown indication
  3. CANNABIS SATIVA SUBSP. INDICA TOP [Concomitant]
     Active Substance: CANNABIS SATIVA SUBSP. INDICA TOP
     Indication: Product used for unknown indication
  4. CLONAZEPAM [Concomitant]
     Active Substance: CLONAZEPAM
     Indication: Product used for unknown indication
  5. EPINEPHRINE [Concomitant]
     Active Substance: EPINEPHRINE
     Indication: Product used for unknown indication
  6. EZETIMIBE [Concomitant]
     Active Substance: EZETIMIBE
     Indication: Product used for unknown indication
  7. FARXIGA [Concomitant]
     Active Substance: DAPAGLIFLOZIN PROPANEDIOL
     Indication: Product used for unknown indication
  8. IBUPROFEN [Concomitant]
     Active Substance: IBUPROFEN
     Indication: Product used for unknown indication
  9. IRON [Concomitant]
     Active Substance: IRON
     Indication: Product used for unknown indication
  10. LAMOTRIGINE [Concomitant]
     Active Substance: LAMOTRIGINE
     Indication: Product used for unknown indication
  11. LUPRON [Concomitant]
     Active Substance: LEUPROLIDE ACETATE
     Indication: Product used for unknown indication
  12. METFORMIN [Concomitant]
     Active Substance: METFORMIN HYDROCHLORIDE
     Indication: Product used for unknown indication
  13. NAPROXEN [Concomitant]
     Active Substance: NAPROXEN
     Indication: Product used for unknown indication
  14. NARCAN [Concomitant]
     Active Substance: NALOXONE HYDROCHLORIDE
     Indication: Product used for unknown indication
  15. ONDANSETRON [Concomitant]
     Active Substance: ONDANSETRON
     Indication: Product used for unknown indication
  16. OXYCODONE [Concomitant]
     Active Substance: OXYCODONE\OXYCODONE HYDROCHLORIDE
     Indication: Product used for unknown indication
  17. SERTRALINE [Concomitant]
     Active Substance: SERTRALINE HYDROCHLORIDE
     Indication: Product used for unknown indication
  18. VITAMIN B12 [Concomitant]
     Active Substance: CYANOCOBALAMIN
     Indication: Product used for unknown indication
  19. ZOLEDRONIC ACID [Concomitant]
     Active Substance: ZOLEDRONIC ACID
     Indication: Product used for unknown indication

REACTIONS (1)
  - Tumour marker increased [Unknown]
